FAERS Safety Report 11616048 (Version 1)
Quarter: 2015Q4

REPORT INFORMATION
  Report Type: Spontaneous
  Country: PH (occurrence: PH)
  Receive Date: 20151009
  Receipt Date: 20151009
  Transmission Date: 20160304
  Serious: Yes (Hospitalization)
  Sender: FDA-Public Use
  Company Number: PH-009507513-1510PHL002959

PATIENT
  Sex: Female

DRUGS (6)
  1. PRITOR [Concomitant]
     Active Substance: TELMISARTAN
     Indication: HYPERTENSION
     Dosage: UNK
  2. PLAVIX [Concomitant]
     Active Substance: CLOPIDOGREL BISULFATE
     Indication: HYPERTENSION
     Dosage: UNK
  3. ASAPRIN [Concomitant]
     Dosage: UNK
  4. STRESSTABS (VITAMINS (UNSPECIFIED)) [Concomitant]
     Indication: ROUTINE HEALTH MAINTENANCE
     Dosage: UNK
  5. JANUMET [Suspect]
     Active Substance: METFORMIN HYDROCHLORIDE\SITAGLIPTIN PHOSPHATE
     Indication: DIABETES MELLITUS
     Dosage: 1 DF, QD
     Route: 048
     Dates: start: 2011
  6. SOLOSA [Concomitant]
     Active Substance: GLIMEPIRIDE
     Indication: DIABETES MELLITUS
     Dosage: UNK

REACTIONS (6)
  - Hypersensitivity [Recovered/Resolved]
  - Asthma [Recovered/Resolved]
  - Blood glucose abnormal [Recovering/Resolving]
  - Cough [Recovered/Resolved]
  - Nasopharyngitis [Recovered/Resolved]
  - Inappropriate schedule of drug administration [Unknown]

NARRATIVE: CASE EVENT DATE: 2015
